FAERS Safety Report 25021525 (Version 1)
Quarter: 2025Q1

REPORT INFORMATION
  Report Type: Report from Study
  Country: TW (occurrence: TW)
  Receive Date: 20250228
  Receipt Date: 20250228
  Transmission Date: 20250408
  Serious: Yes (Hospitalization)
  Sender: JOHNSON AND JOHNSON
  Company Number: TW-JNJFOC-20250246802

PATIENT
  Sex: Female

DRUGS (1)
  1. RYBREVANT [Suspect]
     Active Substance: AMIVANTAMAB-VMJW
     Indication: Product used for unknown indication
     Route: 065
     Dates: start: 20250214

REACTIONS (10)
  - Infusion related reaction [Unknown]
  - Syncope [Unknown]
  - Pyrexia [Unknown]
  - Chills [Unknown]
  - Ocular hyperaemia [Unknown]
  - Headache [Unknown]
  - Mouth swelling [Unknown]
  - Nausea [Unknown]
  - Dizziness [Unknown]
  - Off label use [Unknown]

NARRATIVE: CASE EVENT DATE: 20250214
